FAERS Safety Report 17161434 (Version 2)
Quarter: 2020Q1

REPORT INFORMATION
  Report Type: Report from Study
  Country: JP (occurrence: JP)
  Receive Date: 20191216
  Receipt Date: 20200210
  Transmission Date: 20200409
  Serious: Yes (Other)
  Sender: FDA-Public Use
  Company Number: JP-ALEXION-A201808933

PATIENT

DRUGS (21)
  1. E KEPPRA [Concomitant]
     Active Substance: LEVETIRACETAM
     Dosage: 150 MG, BID
     Route: 048
     Dates: start: 20190109, end: 20190216
  2. PHENOBAL                           /00023201/ [Concomitant]
     Active Substance: PHENOBARBITAL
     Indication: HYPOPHOSPHATASIA
     Dosage: 55 MG, BID
     Route: 048
     Dates: end: 20180809
  3. EPINASTINE. [Concomitant]
     Active Substance: EPINASTINE HYDROCHLORIDE
     Indication: FEELING HOT
  4. VITAMIN B6 [Concomitant]
     Active Substance: PYRIDOXINE HYDROCHLORIDE
     Indication: HYPOPHOSPHATASIA
     Dosage: 225 MG, BID
     Route: 048
     Dates: start: 20190121
  5. ALFAROL [Suspect]
     Active Substance: ALFACALCIDOL
     Dosage: 1 ML, QD
     Route: 048
     Dates: start: 20181005, end: 20181115
  6. PHENOBAL                           /00023201/ [Concomitant]
     Active Substance: PHENOBARBITAL
     Dosage: 27.5 MG, BID
     Route: 048
     Dates: start: 20180809, end: 20180816
  7. STRENSIQ [Suspect]
     Active Substance: ASFOTASE ALFA
     Indication: HYPOPHOSPHATASIA
     Dosage: 2 MG/KG, TIW
     Route: 058
     Dates: start: 20151002
  8. PHENOBAL                           /00023201/ [Concomitant]
     Active Substance: PHENOBARBITAL
     Dosage: 44 MG, BID
     Route: 048
     Dates: start: 20180817, end: 20190215
  9. EPINASTINE. [Concomitant]
     Active Substance: EPINASTINE HYDROCHLORIDE
     Indication: INDURATION
  10. ALFAROL [Suspect]
     Active Substance: ALFACALCIDOL
     Indication: HYPOPHOSPHATASIA
     Dosage: 1 ML, QD
     Route: 048
     Dates: end: 20180912
  11. RIVOTRIL [Concomitant]
     Active Substance: CLONAZEPAM
     Indication: HYPOPHOSPHATASIA
     Dosage: 2.5 MG, BID
     Route: 048
  12. E KEPPRA [Concomitant]
     Active Substance: LEVETIRACETAM
     Dosage: 110 MG, BID
     Route: 048
     Dates: start: 20180817, end: 20190108
  13. CARBOCISTEINE [Concomitant]
     Active Substance: CARBOCYSTEINE
     Indication: PROPHYLAXIS
     Dosage: 100 MG, TID
     Route: 048
  14. PYRIDOXINE [Concomitant]
     Active Substance: PYRIDOXINE
     Indication: HYPOPHOSPHATASIA
     Dosage: 225 MG, BID
     Route: 048
     Dates: end: 20190120
  15. L CARTIN FF [Concomitant]
     Active Substance: LEVOCARNITINE
     Indication: PROPHYLAXIS
     Dosage: 1 ML, TID
     Route: 048
  16. ALFAROL [Suspect]
     Active Substance: ALFACALCIDOL
     Dosage: 2 ML, QD
     Route: 048
     Dates: start: 20180913, end: 20181004
  17. PHENOBAL                           /00023201/ [Concomitant]
     Active Substance: PHENOBARBITAL
     Dosage: 45 MG, BID
     Route: 048
     Dates: start: 20190216
  18. E KEPPRA [Concomitant]
     Active Substance: LEVETIRACETAM
     Indication: HYPOPHOSPHATASIA
     Dosage: 160 MG, BID
     Route: 048
     Dates: end: 20180816
  19. E KEPPRA [Concomitant]
     Active Substance: LEVETIRACETAM
     Dosage: 225 MG, BID
     Route: 048
     Dates: start: 20190217
  20. MUCOSAL                            /00082801/ [Concomitant]
     Indication: PROPHYLAXIS
     Dosage: 4.5 MG, BID
     Route: 048
  21. EPINASTINE. [Concomitant]
     Active Substance: EPINASTINE HYDROCHLORIDE
     Indication: INJECTION SITE ERYTHEMA
     Dosage: 5 MG, QD
     Route: 048
     Dates: start: 20181203

REACTIONS (7)
  - Skull malformation [Unknown]
  - Talipes [Unknown]
  - Neutralising antibodies positive [Unknown]
  - Drug ineffective [Unknown]
  - Nephrocalcinosis [Recovered/Resolved]
  - Nephrolithiasis [Recovered/Resolved]
  - Tooth loss [Unknown]

NARRATIVE: CASE EVENT DATE: 20180710
